FAERS Safety Report 5063588-6 (Version None)
Quarter: 2006Q3

REPORT INFORMATION
  Report Type: 
  Country: None (occurrence: None)
  Receive Date: 20060727
  Receipt Date: 20060530
  Transmission Date: 20061208
  Serious: Yes (Other)
  Sender: FDA-Public Use
  Company Number: PHEH2006US07104

PATIENT
  Age: 42 Year
  Sex: Female
  Weight: 85.26 kg

DRUGS (5)
  1. LUNESTA [Concomitant]
     Indication: INSOMNIA
     Dosage: 2 MG, QHS
     Route: 048
     Dates: start: 20050523, end: 20050919
  2. AMBIEN [Concomitant]
     Indication: INSOMNIA
     Dosage: 5-10 MG, QHS
     Dates: start: 20050919, end: 20060120
  3. AMBIEN [Concomitant]
     Dosage: 12.5 MG, QHS
     Route: 048
     Dates: start: 20060120
  4. HYDROCODONE [Concomitant]
     Route: 048
  5. GLEEVEC [Suspect]
     Indication: CHRONIC MYELOID LEUKAEMIA
     Dosage: 400 MG, QD
     Route: 048
     Dates: start: 20040728

REACTIONS (12)
  - BLINDNESS TRANSIENT [None]
  - BLOOD IMMUNOGLOBULIN G INCREASED [None]
  - CSF OLIGOCLONAL BAND PRESENT [None]
  - MULTIPLE SCLEROSIS [None]
  - NAUSEA [None]
  - NUCLEAR MAGNETIC RESONANCE IMAGING BRAIN ABNORMAL [None]
  - OPTIC NEURITIS [None]
  - PUPILS UNEQUAL [None]
  - RETINAL HAEMORRHAGE [None]
  - UPPER RESPIRATORY TRACT INFECTION [None]
  - VERTIGO [None]
  - VISUAL DISTURBANCE [None]
